FAERS Safety Report 9277538 (Version 1)
Quarter: 2013Q2

REPORT INFORMATION
  Report Type: Spontaneous
  Country: DE (occurrence: DE)
  Receive Date: 20130508
  Receipt Date: 20130508
  Transmission Date: 20140414
  Serious: Yes (Other)
  Sender: FDA-Public Use
  Company Number: DE-MYLANLABS-2013S1009102

PATIENT
  Age: 56 Year
  Sex: Male

DRUGS (2)
  1. CITALOPRAM [Suspect]
     Indication: DEPRESSION
     Dosage: DAILY DOSE: 30 MG MILLGRAM(S) EVERY DAYS
     Route: 048
     Dates: start: 20121105, end: 20121221
  2. ZOP [Concomitant]
     Indication: SLEEP DISORDER
     Route: 048
     Dates: start: 201211

REACTIONS (2)
  - Blood creatine phosphokinase increased [Unknown]
  - Muscle spasms [Unknown]
